FAERS Safety Report 6167570-7 (Version None)
Quarter: 2009Q2

REPORT INFORMATION
  Report Type: 
  Country: None (occurrence: None)
  Receive Date: 20090424
  Receipt Date: 20090414
  Transmission Date: 20091009
  Serious: Yes (Hospitalization)
  Sender: FDA-Public Use
  Company Number: GB-AMGEN-US339149

PATIENT
  Sex: Female
  Weight: 74 kg

DRUGS (4)
  1. ENBREL [Suspect]
     Indication: PSORIATIC ARTHROPATHY
     Route: 058
     Dates: start: 20060929, end: 20090311
  2. DULOXETINE HYDROCHLORIDE [Concomitant]
     Dosage: 60 MG FREQUENCY UNKNOWN
     Route: 048
     Dates: start: 20080101
  3. BENDROFLUMETHIAZIDE [Concomitant]
     Indication: HYPERTENSION
     Dosage: 2.5 UNKNOWN UNITS, UNKNOWN FREQUENCY
     Route: 048
     Dates: start: 20050101
  4. TRAMADOL HCL [Concomitant]
     Indication: PAIN
     Dosage: 50 MG FREQUENCY UNKNOWN
     Route: 048
     Dates: start: 19990101

REACTIONS (4)
  - KNEE ARTHROPLASTY [None]
  - NEUTROPENIA [None]
  - PSEUDOMONAS INFECTION [None]
  - STAPHYLOCOCCAL ABSCESS [None]
